FAERS Safety Report 23021493 (Version 2)
Quarter: 2023Q4

REPORT INFORMATION
  Report Type: Spontaneous
  Country: US (occurrence: US)
  Receive Date: 20231003
  Receipt Date: 20231009
  Transmission Date: 20240110
  Serious: No
  Sender: FDA-Public Use
  Company Number: US-SANOFI-01783574

PATIENT
  Age: 59 Year
  Sex: Female

DRUGS (2)
  1. LANTUS SOLOSTAR [Suspect]
     Active Substance: INSULIN GLARGINE
     Indication: Type 2 diabetes mellitus
     Dosage: 70 IU, QD
     Dates: start: 202306
  2. NOVOLOG [Concomitant]
     Active Substance: INSULIN ASPART
     Dosage: 40 U

REACTIONS (2)
  - Injection site bruising [Unknown]
  - Device operational issue [Unknown]

NARRATIVE: CASE EVENT DATE: 20230101
